FAERS Safety Report 12645795 (Version 1)
Quarter: 2016Q3

REPORT INFORMATION
  Report Type: Spontaneous
  Country: US (occurrence: US)
  Receive Date: 20160811
  Receipt Date: 20160811
  Transmission Date: 20161109
  Serious: No
  Sender: FDA-Public Use
  Company Number: US-ENDO PHARMACEUTICALS INC.-2016-000611

PATIENT
  Age: 66 Year
  Sex: Female
  Weight: 54.48 kg

DRUGS (2)
  1. PREDNISONE TABLETS 5MG [Suspect]
     Active Substance: PREDNISONE
     Indication: PRURITUS
  2. PREDNISONE TABLETS 5MG [Suspect]
     Active Substance: PREDNISONE
     Indication: SWELLING FACE
     Dosage: 5MG EIGHT TABLETS DAILY
     Route: 065
     Dates: start: 20160105

REACTIONS (4)
  - Poor quality sleep [Not Recovered/Not Resolved]
  - Hypersensitivity [Unknown]
  - Nausea [Not Recovered/Not Resolved]
  - Feeling abnormal [Not Recovered/Not Resolved]

NARRATIVE: CASE EVENT DATE: 20160105
